FAERS Safety Report 8575626-4 (Version None)
Quarter: 2012Q3

REPORT INFORMATION
  Report Type: 
  Country: None (occurrence: None)
  Receive Date: 20120807
  Receipt Date: 20120730
  Transmission Date: 20120928
  Serious: Yes (Hospitalization, Other)
  Sender: FDA-Public Use
  Company Number: US-US-EMD SERONO, INC.-7147636

PATIENT
  Sex: Male

DRUGS (4)
  1. REBIF [Suspect]
     Indication: MULTIPLE SCLEROSIS
     Route: 058
     Dates: start: 20120307
  2. LISINOPRIL [Concomitant]
     Indication: HYPERTENSION
     Dates: start: 20100101
  3. DIAZEPAM [Concomitant]
     Indication: ANGER
     Dates: start: 20100101
  4. DIAZEPAM [Concomitant]
     Indication: ANXIETY

REACTIONS (6)
  - EYE INJURY [None]
  - KERATORHEXIS [None]
  - DEHYDRATION [None]
  - RETINAL VASCULAR DISORDER [None]
  - FALL [None]
  - BLOOD GLUCOSE DECREASED [None]
